FAERS Safety Report 9537915 (Version 2)
Quarter: 2014Q2

REPORT INFORMATION
  Report Type: Spontaneous
  Country: CH (occurrence: CH)
  Receive Date: 20130919
  Receipt Date: 20140421
  Transmission Date: 20141212
  Serious: Yes (Hospitalization)
  Sender: FDA-Public Use
  Company Number: PHHY2013CH100733

PATIENT
  Age: 1 Year
  Sex: Male

DRUGS (1)
  1. DEXAMETHASONE [Suspect]
     Dosage: 1 MG, UNK
     Route: 064

REACTIONS (12)
  - Encephalopathy [Unknown]
  - Cerebral atrophy [Unknown]
  - Central nervous system lesion [Unknown]
  - Loss of consciousness [Unknown]
  - Irritability [Unknown]
  - Pupillary light reflex tests abnormal [Unknown]
  - Gaze palsy [Unknown]
  - Eye oedema [Unknown]
  - Hemianopia [Unknown]
  - Hemiparesis [Unknown]
  - Hyperreflexia [Unknown]
  - Foetal exposure during pregnancy [Unknown]
